FAERS Safety Report 6134243-6 (Version None)
Quarter: 2009Q1

REPORT INFORMATION
  Report Type: 
  Country: None (occurrence: None)
  Receive Date: 20090325
  Receipt Date: 20090309
  Transmission Date: 20090719
  Serious: Yes (Death, Life-Threatening, Hospitalization)
  Sender: FDA-Public Use
  Company Number: 2008BI030940

PATIENT
  Age: 63 Year
  Sex: Female

DRUGS (2)
  1. ZEVALIN [Suspect]
     Indication: NON-HODGKIN'S LYMPHOMA
     Dosage: 1X;IV
     Route: 042
     Dates: start: 20041101, end: 20041101
  2. MABTHERA [Concomitant]

REACTIONS (2)
  - HUMAN POLYOMAVIRUS INFECTION [None]
  - PROGRESSIVE MULTIFOCAL LEUKOENCEPHALOPATHY [None]
